FAERS Safety Report 23461752 (Version 1)
Quarter: 2024Q1

REPORT INFORMATION
  Report Type: Report from Study
  Country: ES (occurrence: ES)
  Receive Date: 20240131
  Receipt Date: 20240131
  Transmission Date: 20240410
  Serious: Yes (Hospitalization, Disabling)
  Sender: FDA-Public Use
  Company Number: ES-BoehringerIngelheim-2021-BI-111996

PATIENT
  Age: 54 Year
  Sex: Male
  Weight: 79 kg

DRUGS (6)
  1. OFEV [Suspect]
     Active Substance: NINTEDANIB
     Indication: Idiopathic pulmonary fibrosis
     Dosage: 150MG/12H
     Route: 048
     Dates: start: 20200115, end: 20210811
  2. OFEV [Suspect]
     Active Substance: NINTEDANIB
     Route: 048
     Dates: start: 20210819
  3. OFEV [Suspect]
     Active Substance: NINTEDANIB
     Route: 048
     Dates: start: 202111
  4. OFEV [Suspect]
     Active Substance: NINTEDANIB
     Dosage: 150 MG/24H MONDAY, WEDNESDAY, FRIDAY AND SUNDAY AND 300 MG/24H TUESDAY AND THURSDAY.
     Route: 048
     Dates: start: 20211219, end: 20220223
  5. OFEV [Suspect]
     Active Substance: NINTEDANIB
     Route: 048
     Dates: start: 20220223
  6. NEXIUM [Concomitant]
     Active Substance: ESOMEPRAZOLE MAGNESIUM
     Indication: Product used for unknown indication

REACTIONS (9)
  - Gastric bypass [Recovered/Resolved]
  - Idiopathic pulmonary fibrosis [Recovered/Resolved]
  - COVID-19 [Recovered/Resolved]
  - Weight increased [Unknown]
  - Weight decreased [Recovered/Resolved]
  - Diarrhoea [Recovered/Resolved]
  - Muscle atrophy [Not Recovered/Not Resolved]
  - Fatigue [Not Recovered/Not Resolved]
  - Diarrhoea [Not Recovered/Not Resolved]

NARRATIVE: CASE EVENT DATE: 20200101
